FAERS Safety Report 14191878 (Version 1)
Quarter: 2017Q4

REPORT INFORMATION
  Report Type: Report from Study
  Country: US (occurrence: US)
  Receive Date: 20171115
  Receipt Date: 20171115
  Transmission Date: 20180321
  Serious: Yes (Other)
  Sender: FDA-Public Use
  Company Number: US-EISAI MEDICAL RESEARCH-EC-2017-032782

PATIENT
  Sex: Female
  Weight: 91 kg

DRUGS (13)
  1. NEOMYCIN-POLYMYXIN-DEX [Concomitant]
  2. PANTOPRAZOLE SODIUM. [Concomitant]
     Active Substance: PANTOPRAZOLE SODIUM
  3. LEVOTHYROXINE SODIUM. [Concomitant]
     Active Substance: LEVOTHYROXINE SODIUM
  4. CEPHALEXIN. [Concomitant]
     Active Substance: CEPHALEXIN
  5. FLUZONE HIGH DOSE 2017 [Concomitant]
  6. TRIAMTERENE-HYDROCHLOR [Concomitant]
  7. MULTIVITAMINS [Concomitant]
     Active Substance: VITAMINS
  8. ONDANSETRON HCL [Concomitant]
     Active Substance: ONDANSETRON HYDROCHLORIDE
  9. ATENOLOL. [Concomitant]
     Active Substance: ATENOLOL
  10. AMLODIPINE BESYLATE. [Concomitant]
     Active Substance: AMLODIPINE BESYLATE
  11. LENVIMA [Suspect]
     Active Substance: LENVATINIB
     Indication: THYROID CANCER
     Route: 048
     Dates: start: 201710, end: 201710
  12. LENVIMA [Suspect]
     Active Substance: LENVATINIB
     Route: 048
     Dates: start: 201710, end: 20171030
  13. POTASSIUM GLUCONATE [Concomitant]
     Active Substance: POTASSIUM GLUCONATE

REACTIONS (6)
  - Confusional state [Not Recovered/Not Resolved]
  - Cerebrovascular accident [Unknown]
  - Headache [Unknown]
  - Vision blurred [Unknown]
  - Fall [Unknown]
  - Blood pressure increased [Recovering/Resolving]

NARRATIVE: CASE EVENT DATE: 2017
